FAERS Safety Report 11996077 (Version 1)
Quarter: 2016Q1

REPORT INFORMATION
  Report Type: Spontaneous
  Country: US (occurrence: US)
  Receive Date: 20160203
  Receipt Date: 20160203
  Transmission Date: 20160526
  Serious: No
  Sender: FDA-Public Use
  Company Number: US-GILEAD-2016-0195354

PATIENT
  Sex: Male

DRUGS (1)
  1. ATRIPLA [Suspect]
     Active Substance: EFAVIRENZ\EMTRICITABINE\TENOFOVIR DISOPROXIL FUMARATE
     Indication: PRODUCT USED FOR UNKNOWN INDICATION
     Route: 065

REACTIONS (7)
  - Emotional disorder [Unknown]
  - Impaired work ability [Unknown]
  - Disturbance in attention [Unknown]
  - Insomnia [Unknown]
  - Feeling abnormal [Unknown]
  - Euphoric mood [Unknown]
  - Disorientation [Unknown]
